FAERS Safety Report 14940103 (Version 8)
Quarter: 2020Q4

REPORT INFORMATION
  Report Type: Spontaneous
  Country: US (occurrence: US)
  Receive Date: 20180525
  Receipt Date: 20201211
  Transmission Date: 20210113
  Serious: Yes (Other)
  Sender: FDA-Public Use
  Company Number: US-PFIZER INC-2018212798

PATIENT
  Age: 53 Year
  Sex: Female

DRUGS (5)
  1. ALDACTONE [Suspect]
     Active Substance: SPIRONOLACTONE
     Dosage: 125 MG, DAILY, (50 MG IN THE MORNING AND 75 IN PM)
  2. ALDACTONE [Suspect]
     Active Substance: SPIRONOLACTONE
     Indication: HYPOKALAEMIA
     Dosage: 50 MG, 2X/DAY (50 MG IN THE MORNING AND IN THE EVENING)
  3. KCL [Suspect]
     Active Substance: POTASSIUM CHLORIDE
     Indication: MINERAL SUPPLEMENTATION
     Dosage: 12000 MG, DAILY
  4. ALDACTONE [Suspect]
     Active Substance: SPIRONOLACTONE
     Indication: GITELMAN^S SYNDROME
     Dosage: 25 MG
  5. KCL [Suspect]
     Active Substance: POTASSIUM CHLORIDE
     Dosage: UNK, 2X/DAY

REACTIONS (4)
  - Contraindicated product administered [Unknown]
  - Blood potassium decreased [Unknown]
  - Maternal exposure during pregnancy [Unknown]
  - Off label use [Unknown]
